FAERS Safety Report 5519737-6 (Version None)
Quarter: 2007Q4

REPORT INFORMATION
  Report Type: 
  Country: None (occurrence: None)
  Receive Date: 20071116
  Receipt Date: 20070810
  Transmission Date: 20080405
  Serious: No
  Sender: FDA-Public Use
  Company Number: A0666873A

PATIENT
  Age: 73 Year
  Sex: Male

DRUGS (3)
  1. COREG CR [Suspect]
     Indication: LEFT VENTRICULAR DYSFUNCTION
     Dosage: 80MG PER DAY
     Route: 048
     Dates: start: 20070701
  2. WARFARIN SODIUM [Concomitant]
  3. FELODIPINE [Concomitant]

REACTIONS (6)
  - DISORIENTATION [None]
  - DIZZINESS [None]
  - DYSPNOEA [None]
  - HEADACHE [None]
  - ILL-DEFINED DISORDER [None]
  - PAIN [None]
